FAERS Safety Report 4283086-7 (Version None)
Quarter: 2004Q1

REPORT INFORMATION
  Report Type: 
  Country: None (occurrence: None)
  Receive Date: 20040129
  Receipt Date: 20040115
  Transmission Date: 20041129
  Serious: Yes (Other)
  Sender: FDA-Public Use
  Company Number: A-US2004-04296

PATIENT
  Age: 61 Year
  Sex: Female
  Weight: 69.2 kg

DRUGS (3)
  1. TRACLEER [Suspect]
     Indication: PULMONARY HYPERTENSION
     Dosage: SEE IMAGE
     Route: 048
     Dates: start: 20010315, end: 20010604
  2. TRACLEER [Suspect]
     Indication: PULMONARY HYPERTENSION
     Dosage: SEE IMAGE
     Route: 048
     Dates: start: 20010605, end: 20031213
  3. WARFARIN SODIUM [Concomitant]

REACTIONS (3)
  - AUTOIMMUNE HEPATITIS [None]
  - NASAL CONGESTION [None]
  - UPPER RESPIRATORY TRACT INFECTION [None]
